FAERS Safety Report 20807370 (Version 1)
Quarter: 2022Q2

REPORT INFORMATION
  Report Type: Spontaneous
  Country: PL (occurrence: PL)
  Receive Date: 20220510
  Receipt Date: 20220510
  Transmission Date: 20220721
  Serious: Yes (Other)
  Sender: FDA-Public Use
  Company Number: PL-UCBSA-2022026440

PATIENT
  Age: 71 Year
  Sex: Female

DRUGS (6)
  1. KEPPRA [Suspect]
     Active Substance: LEVETIRACETAM
     Indication: Status epilepticus
     Dosage: UNK
     Route: 042
  2. KEPPRA [Suspect]
     Active Substance: LEVETIRACETAM
     Indication: Partial seizures
  3. KEPPRA [Suspect]
     Active Substance: LEVETIRACETAM
     Indication: Off label use
  4. CLONAZEPAM [Concomitant]
     Active Substance: CLONAZEPAM
     Indication: Status epilepticus
  5. ACYCLOVIR [Concomitant]
     Active Substance: ACYCLOVIR
     Indication: Meningoencephalitis herpetic
     Dosage: 1500 MILLIGRAM/DAY
  6. DIAZEPAM [Concomitant]
     Active Substance: DIAZEPAM
     Indication: Partial seizures

REACTIONS (4)
  - Partial seizures [Unknown]
  - Memory impairment [Unknown]
  - Drug ineffective for unapproved indication [Unknown]
  - Off label use [Unknown]
